FAERS Safety Report 6947473-8 (Version None)
Quarter: 2010Q3

REPORT INFORMATION
  Report Type: 
  Country: None (occurrence: None)
  Receive Date: 20100825
  Receipt Date: 20100806
  Transmission Date: 20110219
  Serious: Yes (Other)
  Sender: FDA-Public Use
  Company Number: 017421

PATIENT
  Sex: Female
  Weight: 124.6 kg

DRUGS (21)
  1. CETIRIZINE HCL [Suspect]
     Indication: HYPERSENSITIVITY
     Dosage: 10 MG ORAL
     Route: 048
  2. OMEPRAZOLE [Suspect]
     Indication: GASTROOESOPHAGEAL REFLUX DISEASE
     Dosage: 40 MG ORAL
     Route: 048
  3. METHOCARBAMOL [Suspect]
     Indication: PAIN
     Dosage: 500 MG BID ORAL
     Route: 048
  4. BACLOFEN [Suspect]
     Indication: RESTLESS LEGS SYNDROME
     Dosage: 20 MG TID ORAL
     Route: 048
  5. SIMVASTATIN [Suspect]
     Indication: BLOOD CHOLESTEROL INCREASED
     Dosage: 40 MG ORAL
     Route: 048
  6. LYRICA [Suspect]
     Indication: FIBROMYALGIA
     Dosage: 150 MG QID
  7. FLUTICASONE PROPIONATE [Suspect]
     Indication: NASAL SEPTUM DEVIATION
     Dosage: NASAL
     Route: 045
     Dates: start: 20100101
  8. MELOXICAM [Suspect]
     Indication: PAIN
     Dosage: 15 MG BID ORAL
     Route: 048
  9. ACETYLSALICYLIC ACID [Suspect]
     Indication: CARDIAC DISORDER
     Dosage: 81 MG ORAL
     Route: 048
  10. LEVOTHYROXINE SODIUM [Suspect]
     Indication: THYROID DISORDER
     Dosage: 50 UG ORAL
     Route: 048
  11. TEGRETOL [Suspect]
     Indication: MOOD SWINGS
     Dosage: 400MG IN THE MORNING; 800MG IN THE EVENING ORAL
     Route: 048
  12. TEGRETOL [Suspect]
     Indication: PERSONALITY DISORDER
     Dosage: 400MG IN THE MORNING; 800MG IN THE EVENING ORAL
     Route: 048
  13. PROVIGIL [Suspect]
     Indication: SLEEP APNOEA SYNDROME
     Dosage: 200 MG ORAL, INCREASED TO 1 AND 1/2 TABLETS DAILY ORAL
     Route: 048
  14. PROPRANOLOL [Suspect]
     Dosage: 20 MG BID ORAL
     Route: 048
  15. METHADOSE [Suspect]
     Indication: PAIN
     Dosage: 10 MG 5X/DAY ORAL
     Route: 048
  16. CYMBALTA [Suspect]
     Indication: DEPRESSION
     Dosage: 60 MG BID ORAL
     Route: 048
  17. LIDODERM [Suspect]
     Indication: MYALGIA
     Dosage: TRANSDERMAL
     Route: 062
  18. REGULAR INSULIN [Suspect]
     Indication: DIABETES MELLITUS
     Dosage: 47 UNITS IN AM AND PM SUBCUTANEOUS
     Route: 058
  19. MIRALAX [Suspect]
     Indication: CONSTIPATION
     Dosage: 17 G ORAL
     Route: 048
  20. FISH OIL [Suspect]
  21. TOCOPHEROL CONCENTRATE CAP [Suspect]

REACTIONS (3)
  - CONDITION AGGRAVATED [None]
  - CONVULSION [None]
  - FIBROMYALGIA [None]
